FAERS Safety Report 19775049 (Version 4)
Quarter: 2021Q4

REPORT INFORMATION
  Report Type: Report from Study
  Country: US (occurrence: US)
  Receive Date: 20210901
  Receipt Date: 20211028
  Transmission Date: 20220303
  Serious: Yes (Death, Life-Threatening, Hospitalization)
  Sender: FDA-Public Use
  Company Number: US-EISAI MEDICAL RESEARCH-EC-2021-098800

PATIENT
  Age: 82 Year
  Sex: Male
  Weight: 74.8 kg

DRUGS (18)
  1. LENVATINIB [Suspect]
     Active Substance: LENVATINIB
     Indication: Renal cell carcinoma
     Dosage: STARTING DOSE AT 20 MG, FLUCTUATED DOSAGE.
     Route: 048
     Dates: start: 20210419, end: 20210806
  2. BELZUTIFAN [Suspect]
     Active Substance: BELZUTIFAN
     Indication: Renal cell carcinoma
     Dosage: STARTING DOSE AT 120 MG, FLUCTUATED DOSAGE.
     Route: 048
     Dates: start: 20210419, end: 20210806
  3. CODEINE\GUAIFENESIN [Concomitant]
     Active Substance: CODEINE\GUAIFENESIN
     Dates: start: 202001
  4. FAMOTIDINE [Concomitant]
     Active Substance: FAMOTIDINE
     Dates: start: 20180101
  5. BREO ELLIPTA [Concomitant]
     Active Substance: FLUTICASONE FUROATE\VILANTEROL TRIFENATATE
     Dates: start: 202004
  6. ROBITUSSIN EXPECTORANTS [Concomitant]
     Dates: start: 20210327
  7. OXYGEN [Concomitant]
     Active Substance: OXYGEN
     Dates: start: 202001
  8. LOSARTAN [Concomitant]
     Active Substance: LOSARTAN
     Dates: start: 20210511, end: 20210816
  9. METOPROLOL [Concomitant]
     Active Substance: METOPROLOL
     Dates: start: 20210511
  10. SINGULAIR [Concomitant]
     Active Substance: MONTELUKAST SODIUM
     Dates: start: 20210210
  11. HYDROCHLOROTHIAZIDE [Concomitant]
     Active Substance: HYDROCHLOROTHIAZIDE
     Dates: start: 20210518
  12. MYLANTA ORIGINAL [Concomitant]
     Dates: start: 20210518
  13. BENADRYL N [Concomitant]
     Dates: start: 20210518
  14. POTASSIUM CHLORIDE [Concomitant]
     Active Substance: POTASSIUM CHLORIDE
  15. LEVOTHYROXINE SODIUM [Concomitant]
     Active Substance: LEVOTHYROXINE SODIUM
     Dates: start: 20210701, end: 20210816
  16. EPOETIN ALFA EPBX [Concomitant]
     Dates: start: 20210811, end: 20210811
  17. AZITHROMYCIN ANHYDROUS [Concomitant]
     Active Substance: AZITHROMYCIN ANHYDROUS
     Dates: start: 20210811, end: 20210816
  18. METHYLPREDNISOLONE [Concomitant]
     Active Substance: METHYLPREDNISOLONE
     Dates: start: 20210813, end: 20210813

REACTIONS (1)
  - Haemoptysis [Not Recovered/Not Resolved]

NARRATIVE: CASE EVENT DATE: 20210813
